FAERS Safety Report 7037239-5 (Version None)
Quarter: 2010Q4

REPORT INFORMATION
  Report Type: 
  Country: None (occurrence: None)
  Receive Date: 20101011
  Receipt Date: 20101001
  Transmission Date: 20110411
  Serious: Yes (Other)
  Sender: FDA-Public Use
  Company Number: PE-ROCHE-730763

PATIENT
  Sex: Female
  Weight: 62 kg

DRUGS (1)
  1. HERCEPTIN [Suspect]
     Indication: BREAST CANCER
     Route: 042
     Dates: start: 20091030

REACTIONS (3)
  - ANAEMIA [None]
  - ERYTHEMA [None]
  - NEOPLASM [None]
